FAERS Safety Report 7437748-0 (Version None)
Quarter: 2011Q2

REPORT INFORMATION
  Report Type: 
  Country: None (occurrence: None)
  Receive Date: 20110426
  Receipt Date: 20110419
  Transmission Date: 20111010
  Serious: Yes (Other)
  Sender: FDA-Public Use
  Company Number: FR-PFIZER INC-2011084989

PATIENT
  Age: 51 Year
  Sex: Male

DRUGS (8)
  1. TAHOR [Suspect]
     Indication: TYPE IIA HYPERLIPIDAEMIA
     Dosage: UNK
     Dates: start: 20080701
  2. ACEBUTOLOL [Concomitant]
     Dosage: 200 MG
  3. OMACOR [Concomitant]
     Dosage: UNK
  4. TAHOR [Suspect]
     Dosage: UNK
     Dates: end: 20100101
  5. COVERSYL [Concomitant]
     Dosage: 5 MG
  6. LEVOTHYROX [Concomitant]
     Dosage: 175 UG
  7. PLAVIX [Concomitant]
     Dosage: 75 MG
  8. KARDEGIC [Concomitant]
     Dosage: 75 MG

REACTIONS (4)
  - MUSCLE SPASMS [None]
  - MYALGIA [None]
  - TENDON DISORDER [None]
  - TENDONITIS [None]
